FAERS Safety Report 8866525 (Version 1)
Quarter: 2012Q4

REPORT INFORMATION
  Report Type: Report from Study
  Country: US (occurrence: US)
  Receive Date: 20121025
  Receipt Date: 20121025
  Transmission Date: 20130627
  Serious: No
  Sender: FDA-Public Use
  Company Number: US-ABBOTT-12P-163-0893057-00

PATIENT
  Sex: Female
  Weight: 65.83 kg

DRUGS (2)
  1. LUPRON DEPOT 3.75 MG [Suspect]
     Indication: UTERINE LEIOMYOMA
     Route: 050
     Dates: start: 201109, end: 20120222
  2. AMLODIPINE [Concomitant]
     Indication: HYPERTENSION
     Route: 048

REACTIONS (3)
  - Hot flush [Not Recovered/Not Resolved]
  - Hot flush [Not Recovered/Not Resolved]
  - Amenorrhoea [Not Recovered/Not Resolved]
